FAERS Safety Report 5268254-X (Version None)
Quarter: 2007Q1

REPORT INFORMATION
  Report Type: 
  Country: None (occurrence: None)
  Receive Date: 20070313
  Receipt Date: 20070302
  Transmission Date: 20070707
  Serious: Yes (Hospitalization)
  Sender: FDA-Public Use
  Company Number: 2007S1000001

PATIENT
  Age: 68 Year
  Sex: Female
  Weight: 63.5036 kg

DRUGS (9)
  1. FENTANYL TRANSDERMAL SYSTEM [Suspect]
     Indication: NEURALGIA
     Dosage: SEE IMAGE
     Route: 062
     Dates: start: 20050201, end: 20061217
  2. FENTANYL TRANSDERMAL SYSTEM [Suspect]
     Indication: NEURALGIA
     Dosage: SEE IMAGE
     Route: 062
     Dates: start: 20061217, end: 20061217
  3. FENTANYL TRANSDERMAL SYSTEM [Suspect]
     Indication: NEURALGIA
     Dosage: SEE IMAGE
     Route: 062
     Dates: start: 20061218
  4. PROPRANOLOL [Concomitant]
  5. BENICAR [Concomitant]
  6. VALPROIC ACID [Concomitant]
  7. AMITRIPTYLINE WITH PERPHENAZINE [Concomitant]
  8. XANAX [Concomitant]
  9. OXYCODONE HCL [Concomitant]

REACTIONS (8)
  - CONFUSIONAL STATE [None]
  - DEPRESSED LEVEL OF CONSCIOUSNESS [None]
  - DRUG ADMINISTRATION ERROR [None]
  - DRUG TOXICITY [None]
  - MEMORY IMPAIRMENT [None]
  - OVERDOSE [None]
  - PHARMACEUTICAL PRODUCT COMPLAINT [None]
  - WRONG TECHNIQUE IN DRUG USAGE PROCESS [None]
